FAERS Safety Report 18065907 (Version 1)
Quarter: 2020Q3

REPORT INFORMATION
  Report Type: Spontaneous
  Country: BH (occurrence: BH)
  Receive Date: 20200724
  Receipt Date: 20200724
  Transmission Date: 20201103
  Serious: Yes (Hospitalization, Other)
  Sender: FDA-Public Use
  Company Number: BH-LUPIN PHARMACEUTICALS INC.-2020-03567

PATIENT
  Age: 95 Year
  Sex: Male

DRUGS (4)
  1. LOPINAVIR/RITONAVIR [Suspect]
     Active Substance: LOPINAVIR\RITONAVIR
     Indication: COVID-19 PNEUMONIA
     Dosage: UNK UNK, QD
     Route: 065
  2. PIPERACILLIN AND TAZOBACTAM [Suspect]
     Active Substance: PIPERACILLIN SODIUM\TAZOBACTAM SODIUM
     Indication: COVID-19 PNEUMONIA
     Dosage: UNK UNK, QID
     Route: 065
  3. TOCILIZUMAB. [Suspect]
     Active Substance: TOCILIZUMAB
     Indication: COVID-19 PNEUMONIA
     Dosage: 400 MILLIGRAM, SINGLE (HALF?AN?HOUR DURATION)
     Route: 042
  4. HYDROXYCHLOROQUINE SULFATE TABLETS [Suspect]
     Active Substance: HYDROXYCHLOROQUINE SULFATE
     Indication: COVID-19 PNEUMONIA
     Dosage: 200 MILLIGRAM, BID
     Route: 065

REACTIONS (4)
  - Renal impairment [Recovering/Resolving]
  - Haematuria [Recovering/Resolving]
  - Off label use [Unknown]
  - Diarrhoea [Recovering/Resolving]
